FAERS Safety Report 5062649-5 (Version None)
Quarter: 2006Q3

REPORT INFORMATION
  Report Type: 
  Country: None (occurrence: None)
  Receive Date: 20060724
  Receipt Date: 20060724
  Transmission Date: 20061208
  Serious: Yes (Life-Threatening, Hospitalization)
  Sender: FDA-Public Use
  Company Number: None

PATIENT
  Sex: Male

DRUGS (1)
  1. COTRIMOXAXOLE DS [Suspect]
     Indication: URINARY TRACT INFECTION
     Dosage: 1 DS ONCE DAILY PO
     Route: 048
     Dates: start: 20060429, end: 20060429

REACTIONS (1)
  - STEVENS-JOHNSON SYNDROME [None]
